FAERS Safety Report 5450314-1 (Version None)
Quarter: 2007Q3

REPORT INFORMATION
  Report Type: 
  Country: None (occurrence: None)
  Receive Date: 20070912
  Receipt Date: 20070906
  Transmission Date: 20080115
  Serious: Yes (Death, Life-Threatening, Hospitalization, Disabling, Other)
  Sender: FDA-Public Use
  Company Number: GB-ASTRAZENECA-2006GB01384

PATIENT
  Age: 28137 Day
  Sex: Female

DRUGS (13)
  1. NOLVADEX [Suspect]
     Indication: BREAST CANCER
     Route: 048
     Dates: start: 19981007, end: 20031101
  2. SALBUTAMOL [Concomitant]
     Indication: DYSPNOEA
     Dosage: 1 - 2 PUFFS 4 TIMES A DAY
     Route: 055
     Dates: start: 20020605
  3. TRAMADOL HCL [Concomitant]
     Indication: ANALGESIA
     Route: 048
     Dates: start: 20030603
  4. CALCIUM CARBONATE AND  COLECALCIFEROL CHEWABLE [Concomitant]
     Indication: OSTEOPENIA
     Dosage: 1.5 GRAM + 1 MCG
     Route: 048
     Dates: start: 20060407
  5. TROPSIUM CHLORIDE [Concomitant]
     Indication: POLLAKIURIA
     Route: 048
     Dates: start: 20040927
  6. TROPSIUM CHLORIDE [Concomitant]
     Indication: URINARY INCONTINENCE
     Route: 048
     Dates: start: 20040927
  7. RAMPIPRIL [Concomitant]
     Indication: HYPERTENSION
     Route: 048
     Dates: start: 20040401
  8. DOXAZOSIN MESYLATE [Concomitant]
     Indication: HYPERTENSION
     Route: 048
  9. PARACETAMOL [Concomitant]
     Indication: ANALGESIA
     Route: 048
  10. ZOLPIDEM TARTRATE [Concomitant]
     Indication: INSOMNIA
     Route: 048
  11. METOPROLOL TARTRATE [Concomitant]
     Indication: HYPERTENSION
     Route: 048
     Dates: start: 20020703
  12. NORFLOXACIN [Concomitant]
     Indication: URINARY TRACT INFECTION
     Route: 048
     Dates: start: 20040927
  13. ALENDRONIC ACID [Concomitant]
     Indication: OSTEOPENIA
     Route: 048
     Dates: start: 20041012

REACTIONS (2)
  - CEREBROVASCULAR ACCIDENT [None]
  - TRANSIENT ISCHAEMIC ATTACK [None]
